FAERS Safety Report 9516708 (Version 1)
Quarter: 2013Q1

REPORT INFORMATION
  Report Type: Spontaneous
  Country: US (occurrence: None)
  Receive Date: 20130305
  Receipt Date: 20130305
  Transmission Date: 20140127
  Serious: Yes (Other)
  Sender: FDA-Public Use
  Company Number: 163-21880-12120552

PATIENT
  Age: 35 Year
  Sex: Male

DRUGS (2)
  1. REVLIMID [Suspect]
     Indication: MYELODYSPLASTIC SYNDROME
     Dosage: 10 MG, 28 IN 28 D, PO  THERAPY DATES 08/30/2012- TEMPORARY
     Route: 048
     Dates: start: 20120830
  2. PREDNISONE (PREDNISONE) [Concomitant]

REACTIONS (1)
  - Rash erythematous [None]
